FAERS Safety Report 8814464 (Version 3)
Quarter: 2012Q4

REPORT INFORMATION
  Report Type: 
  Country: IE (occurrence: IE)
  Receive Date: 20120928
  Receipt Date: 20121210
  Transmission Date: 20130627
  Serious: Yes (Hospitalization, Disabling, Other)
  Sender: FDA-Public Use
  Company Number: IE-PFIZER INC-2012236231

PATIENT
  Age: 76 Year
  Sex: Female

DRUGS (9)
  1. CELEBREX [Suspect]
     Indication: OSTEOARTHRITIS KNEES
     Dosage: 100 mg, 1x/day
     Route: 048
     Dates: start: 20120905
  2. CELEBREX [Suspect]
     Dosage: 100 mg, 2x/day
     Dates: end: 20120918
  3. PARACETAMOL [Suspect]
     Indication: OSTEOARTHRITIS KNEES
     Dosage: 1 g, 4x/daily as needed
     Route: 048
     Dates: start: 2009
  4. COVERSYL [Concomitant]
     Indication: HYPERTENSION
     Dosage: 5 mg, 1x/day
     Route: 048
  5. PLENDIL [Concomitant]
     Indication: HYPERTENSION
     Dosage: 5 mg, 1x/day
     Route: 048
     Dates: start: 2011
  6. BISOPROLOL [Concomitant]
     Indication: HYPERTENSION
     Dosage: 10 mg, 1x/day
     Route: 048
  7. TOVIAZ [Concomitant]
     Indication: BLADDER INSTABILITY
     Dosage: 4 mg, 1x/day
     Route: 048
     Dates: start: 201207
  8. ASPIRIN [Concomitant]
     Indication: HYPERTENSION
     Dosage: 75 mg, 1x/day
     Route: 048
  9. MOVICOL [Concomitant]
     Indication: CONSTIPATION
     Dosage: 1 DF, 1x/day
     Route: 048
     Dates: start: 2011

REACTIONS (4)
  - Rectal haemorrhage [Recovered/Resolved]
  - Diverticulum [Recovered/Resolved]
  - Malaise [Recovering/Resolving]
  - Drug ineffective [Unknown]
